FAERS Safety Report 8881072 (Version 2)
Quarter: 2012Q4

REPORT INFORMATION
  Report Type: 
  Country: DE (occurrence: DE)
  Receive Date: 20121101
  Receipt Date: 20121211
  Transmission Date: 20130627
  Serious: Yes (Hospitalization)
  Sender: FDA-Public Use
  Company Number: DE-JNJFOC-20121012642

PATIENT
  Age: 57 Year
  Sex: Male

DRUGS (4)
  1. SIMPONI [Suspect]
     Indication: RHEUMATOID ARTHRITIS
     Route: 058
     Dates: start: 20100421
  2. METHOTREXATE [Concomitant]
     Route: 065
  3. FOLSAN [Concomitant]
     Route: 065
  4. TRAMAL [Concomitant]
     Route: 065

REACTIONS (1)
  - Liver injury [Recovering/Resolving]
